FAERS Safety Report 7577961-5 (Version None)
Quarter: 2011Q2

REPORT INFORMATION
  Report Type: 
  Country: None (occurrence: None)
  Receive Date: 20110621
  Receipt Date: 20110606
  Transmission Date: 20111010
  Serious: Yes (Hospitalization)
  Sender: FDA-Public Use
  Company Number: IDA-00553

PATIENT
  Age: 75 Year
  Sex: Female

DRUGS (7)
  1. PROPRANOLOL [Suspect]
     Dosage: 60 MG DAILY, ORAL FORMULATION
     Route: 048
  2. LEVOTHYROXINE SODIUM [Suspect]
     Indication: HYPOTHYROIDISM
     Dosage: ORAL FORMULATION
     Route: 048
  3. ARCOXIA [Suspect]
     Dosage: DAILY, ORAL FORMULATION
     Route: 048
     Dates: end: 20110510
  4. PROGESTERONE [Suspect]
     Dosage: ORAL FORMULATION
     Route: 048
  5. ACETAMINOPHEN AND TRAMADOL HCL [Concomitant]
  6. ESTRADIOL [Suspect]
     Dosage: .1% DAILY, SUBCUTANEOUS FORMULATION
     Route: 058
  7. MEDIATOR (BENFLUOREX HYDROCHLORIDE) [Suspect]
     Indication: OVERWEIGHT
     Dosage: 150 MG DAILY, ORAL FORMULATION
     Route: 048
     Dates: start: 19940101, end: 20080101

REACTIONS (7)
  - HEART RATE DECREASED [None]
  - CHEST PAIN [None]
  - AORTIC VALVE INCOMPETENCE [None]
  - LEFT ATRIAL DILATATION [None]
  - LEFT VENTRICULAR END-DIASTOLIC PRESSURE INCREASED [None]
  - PULMONARY ARTERIAL HYPERTENSION [None]
  - MITRAL VALVE INCOMPETENCE [None]
